FAERS Safety Report 4555729-1 (Version None)
Quarter: 2005Q1

REPORT INFORMATION
  Report Type: 
  Country: None (occurrence: None)
  Receive Date: 20050112
  Receipt Date: 20031212
  Transmission Date: 20050727
  Serious: Yes (Hospitalization, Disabling, Other)
  Sender: FDA-Public Use
  Company Number: 200330155BWH

PATIENT
  Sex: Male

DRUGS (2)
  1. CIPRO [Suspect]
     Indication: ANTHRAX
     Dosage: ORAL
     Route: 048
     Dates: start: 20011018
  2. CIPRO [Suspect]
     Indication: PROPHYLAXIS
     Dosage: ORAL
     Route: 048
     Dates: start: 20011018

REACTIONS (4)
  - ABASIA [None]
  - PAIN [None]
  - TENDON DISORDER [None]
  - TENDONITIS [None]
